FAERS Safety Report 25737605 (Version 2)
Quarter: 2025Q4

REPORT INFORMATION
  Report Type: Spontaneous
  Country: US (occurrence: US)
  Receive Date: 20250828
  Receipt Date: 20251104
  Transmission Date: 20260118
  Serious: No
  Sender: BRISTOL-MYERS SQUIBB COMPANY
  Company Number: US-BRISTOL-MYERS SQUIBB COMPANY-2025-119329

PATIENT
  Age: 66 Year
  Sex: Female

DRUGS (3)
  1. ZEPOSIA [Suspect]
     Active Substance: OZANIMOD HYDROCHLORIDE
     Indication: Colitis ulcerative
     Route: 048
     Dates: start: 202305
  2. ZEPOSIA [Suspect]
     Active Substance: OZANIMOD HYDROCHLORIDE
     Route: 048
  3. ZEPOSIA [Suspect]
     Active Substance: OZANIMOD HYDROCHLORIDE
     Route: 048

REACTIONS (10)
  - General physical health deterioration [Unknown]
  - Fatigue [Unknown]
  - Vertigo [Unknown]
  - Dizziness [Unknown]
  - Metamorphopsia [Recovering/Resolving]
  - Vision blurred [Recovering/Resolving]
  - Eye infection [Unknown]
  - Hypertension [Unknown]
  - Feeling hot [Unknown]
  - Dehydration [Unknown]
